FAERS Safety Report 12709577 (Version 2)
Quarter: 2017Q1

REPORT INFORMATION
  Report Type: Spontaneous
  Country: AU (occurrence: AU)
  Receive Date: 20160902
  Receipt Date: 20170316
  Transmission Date: 20170428
  Serious: Yes (Other)
  Sender: FDA-Public Use
  Company Number: AU-009507513-1608AUS012018

PATIENT

DRUGS (2)
  1. AVANZA SOLTAB [Suspect]
     Active Substance: MIRTAZAPINE
     Indication: ANTIDEPRESSANT THERAPY
     Route: 048
  2. AVANZA SOLTAB [Suspect]
     Active Substance: MIRTAZAPINE
     Dosage: ADMINISTERED BY INJECTION
     Route: 051

REACTIONS (7)
  - Gastric disorder [Unknown]
  - Product use issue [Unknown]
  - Gastric perforation [Unknown]
  - Drug abuse [Unknown]
  - Gastrectomy [Unknown]
  - Duodenal operation [Unknown]
  - Drug dose omission [Unknown]
